FAERS Safety Report 7055486-3 (Version None)
Quarter: 2010Q4

REPORT INFORMATION
  Report Type: 
  Country: None (occurrence: None)
  Receive Date: 20101021
  Receipt Date: 20101013
  Transmission Date: 20110411
  Serious: Yes (Life-Threatening, Hospitalization, Other)
  Sender: FDA-Public Use
  Company Number: US-ROXANE LABORATORIES, INC.-2010-RO-01356RO

PATIENT
  Age: 37 Year
  Sex: Female

DRUGS (4)
  1. TOPIRAMATE [Suspect]
     Indication: BIPOLAR DISORDER
     Dosage: 200 MG
  2. DIAZEPAM [Suspect]
     Indication: BIPOLAR DISORDER
  3. LORAZEPAM [Suspect]
     Indication: CONVULSION
     Dosage: 3.5 MG
     Route: 042
  4. IBUPROFEN [Suspect]

REACTIONS (9)
  - ATAXIA [None]
  - COMA [None]
  - CONVULSION [None]
  - DYSARTHRIA [None]
  - INTENTIONAL OVERDOSE [None]
  - METABOLIC ACIDOSIS [None]
  - NYSTAGMUS [None]
  - SOMNOLENCE [None]
  - TREATMENT NONCOMPLIANCE [None]
